FAERS Safety Report 18506557 (Version 1)
Quarter: 2020Q4

REPORT INFORMATION
  Report Type: Spontaneous
  Country: US (occurrence: US)
  Receive Date: 20201113
  Receipt Date: 20201113
  Transmission Date: 20210114
  Serious: Yes (Hospitalization)
  Sender: FDA-Public Use
  Company Number: None

PATIENT
  Age: 44 Year
  Sex: Female

DRUGS (9)
  1. AMOX/K CLAV [Concomitant]
     Active Substance: AMOXICILLIN\CLAVULANATE POTASSIUM
  2. ATORVASTATIN TAB [Concomitant]
     Active Substance: ATORVASTATIN
  3. ELIQUIS [Concomitant]
     Active Substance: APIXABAN
  4. LORAZEPAM. [Concomitant]
     Active Substance: LORAZEPAM
  5. TRAUMEEL [Concomitant]
  6. NAPROXEN. [Concomitant]
     Active Substance: NAPROXEN
  7. CAPCITABINE [Suspect]
     Active Substance: CAPECITABINE
     Indication: OVARIAN CANCER
     Dosage: ?          OTHER FREQUENCY:DAYS 1-5 14DAY CYC;?
     Route: 048
     Dates: start: 20200914
  8. MUPIROCIN. [Concomitant]
     Active Substance: MUPIROCIN
  9. OLANZAPINE. [Concomitant]
     Active Substance: OLANZAPINE

REACTIONS (1)
  - Cough [None]

NARRATIVE: CASE EVENT DATE: 20200926
